FAERS Safety Report 4398709-1 (Version None)
Quarter: 2004Q3

REPORT INFORMATION
  Report Type: 
  Country: None (occurrence: None)
  Receive Date: 20040712
  Receipt Date: 20040622
  Transmission Date: 20050211
  Serious: Yes (Hospitalization)
  Sender: FDA-Public Use
  Company Number: FR_040604333

PATIENT
  Age: 85 Year
  Sex: Female
  Weight: 48 kg

DRUGS (2)
  1. PROZAC [Suspect]
     Dosage: 20 MG/1 DAY
     Dates: start: 20040318, end: 20040328
  2. HYZAAR [Concomitant]

REACTIONS (8)
  - ANOREXIA [None]
  - ASTHENIA [None]
  - DISORIENTATION [None]
  - GAIT DISTURBANCE [None]
  - HYPOCHLORAEMIA [None]
  - HYPOKALAEMIA [None]
  - HYPONATRAEMIA [None]
  - VOMITING [None]
